FAERS Safety Report 4800066-0 (Version None)
Quarter: 2005Q4

REPORT INFORMATION
  Report Type: 
  Country: None (occurrence: None)
  Receive Date: 20051013
  Receipt Date: 20051003
  Transmission Date: 20060501
  Serious: Yes (Hospitalization, Other)
  Sender: FDA-Public Use
  Company Number: 2005137714

PATIENT
  Age: 47 Year
  Sex: Male

DRUGS (1)
  1. XALATAN [Suspect]
     Indication: GLAUCOMA
     Dosage: 1 DROP (1 DROP, QD), TOPICAL
     Route: 061
     Dates: start: 20000401

REACTIONS (4)
  - ACCIDENT [None]
  - FALL [None]
  - UPPER LIMB FRACTURE [None]
  - WRIST FRACTURE [None]
